FAERS Safety Report 13792590 (Version 1)
Quarter: 2017Q3

REPORT INFORMATION
  Report Type: Spontaneous
  Country: NZ (occurrence: NZ)
  Receive Date: 20170725
  Receipt Date: 20170725
  Transmission Date: 20171127
  Serious: Yes (Other)
  Sender: FDA-Public Use
  Company Number: NZ-BAXTER-2017BAX027676

PATIENT
  Age: 68 Year
  Sex: Male

DRUGS (19)
  1. CLINOLEIC, EMULSION FOR INFUSION [Suspect]
     Active Substance: OLIVE OIL\SOYBEAN OIL
     Indication: GASTROINTESTINAL DISORDER
     Route: 065
     Dates: start: 201508
  2. WATER FOR INJECTION [Suspect]
     Active Substance: WATER
     Indication: GASTROINTESTINAL DISORDER
     Route: 065
     Dates: start: 201508
  3. POTASSIUM DI-H PHOSPHATE 1MMOL/ML [Suspect]
     Active Substance: POTASSIUM PHOSPHATE, MONOBASIC
     Indication: GASTROINTESTINAL DISORDER
     Route: 065
     Dates: start: 201508
  4. COPPER 100 MICROGRAM/ML [Suspect]
     Active Substance: COPPER
     Indication: GASTROINTESTINAL DISORDER
     Route: 065
     Dates: start: 201508
  5. SODIUM IODIDE 51 MICROGRAM/ML [Suspect]
     Active Substance: SODIUM IODIDE
     Indication: GASTROINTESTINAL DISORDER
     Route: 065
     Dates: start: 201508
  6. SODUM ACETATE [Suspect]
     Active Substance: SODIUM ACETATE ANHYDROUS
     Indication: GASTROINTESTINAL DISORDER
     Route: 065
     Dates: start: 201508
  7. ZINC 2.5MG/ML [Suspect]
     Active Substance: ZINC
     Indication: GASTROINTESTINAL DISORDER
     Route: 065
     Dates: start: 201508
  8. IRON SYRINGE 10 MICROMOL/ML [Suspect]
     Active Substance: IRON
     Indication: GASTROINTESTINAL DISORDER
     Route: 065
     Dates: start: 201508
  9. MANGANESE [Suspect]
     Active Substance: MANGANESE\MANGANESE CHLORIDE
     Indication: GASTROINTESTINAL DISORDER
     Route: 065
     Dates: start: 201508
  10. CERNEVIT [Suspect]
     Active Substance: VITAMINS
     Indication: GASTROINTESTINAL DISORDER
     Route: 065
     Dates: start: 201508
  11. SODIUM CHLORIDE 4MMOL/ML [Suspect]
     Active Substance: SODIUM CHLORIDE
     Indication: GASTROINTESTINAL DISORDER
     Route: 065
     Dates: start: 201508
  12. MAGNESIUM SULFATE 2MMOL/ML [Suspect]
     Active Substance: MAGNESIUM SULFATE
     Indication: GASTROINTESTINAL DISORDER
     Route: 065
     Dates: start: 201508
  13. [PSS GPN] SELENIUM 30MCG/ML [Suspect]
     Active Substance: SELENIUM
     Indication: GASTROINTESTINAL DISORDER
     Route: 065
     Dates: start: 201508
  14. GLUCOSE 70% [Suspect]
     Active Substance: DEXTROSE
     Indication: GASTROINTESTINAL DISORDER
     Route: 065
     Dates: start: 201508
  15. SYNTHAMIN [Suspect]
     Active Substance: AMINO ACIDS
     Indication: GASTROINTESTINAL DISORDER
     Route: 065
     Dates: start: 201508
  16. POTASSIUM ACETATE 5MMOL/ML [Suspect]
     Active Substance: POTASSIUM ACETATE
     Indication: GASTROINTESTINAL DISORDER
     Route: 065
     Dates: start: 201508
  17. [PSS GPN]CHROMIUM 3.2MCG/ML [Suspect]
     Active Substance: CHROMIC CHLORIDE
     Indication: GASTROINTESTINAL DISORDER
     Route: 065
     Dates: start: 201508
  18. CALCIUM GLUCONATE 0.15MMOL/ML [Suspect]
     Active Substance: CALCIUM GLUCONATE
     Indication: GASTROINTESTINAL DISORDER
     Route: 065
     Dates: start: 201508
  19. THYROXINE [Concomitant]
     Active Substance: LEVOTHYROXINE
     Indication: THYROID DISORDER
     Route: 048

REACTIONS (1)
  - Manganese increased [Not Recovered/Not Resolved]

NARRATIVE: CASE EVENT DATE: 20170705
